FAERS Safety Report 18105507 (Version 2)
Quarter: 2020Q3

REPORT INFORMATION
  Report Type: Spontaneous
  Country: CN (occurrence: CN)
  Receive Date: 20200804
  Receipt Date: 20200813
  Transmission Date: 20201103
  Serious: Yes (Hospitalization)
  Sender: FDA-Public Use
  Company Number: CN-JNJFOC-20200742441

PATIENT
  Age: 81 Year
  Sex: Male
  Weight: 77 kg

DRUGS (3)
  1. XARELTO [Suspect]
     Active Substance: RIVAROXABAN
     Indication: ATRIAL FIBRILLATION
     Dosage: 10 MG, QD
     Route: 048
     Dates: start: 20200408, end: 20200416
  2. XARELTO [Suspect]
     Active Substance: RIVAROXABAN
     Indication: ATRIAL FIBRILLATION
     Dosage: 10 MG, BID
     Route: 048
     Dates: start: 20200319, end: 20200407
  3. XARELTO [Suspect]
     Active Substance: RIVAROXABAN
     Indication: ATRIAL FIBRILLATION
     Dosage: 10 MG, QD
     Route: 048
     Dates: start: 20191022, end: 20200318

REACTIONS (3)
  - Headache [Unknown]
  - Off label use [Unknown]
  - Blood urine present [Recovering/Resolving]

NARRATIVE: CASE EVENT DATE: 20191022
